FAERS Safety Report 7950303-9 (Version None)
Quarter: 2011Q4

REPORT INFORMATION
  Report Type: 
  Country: None (occurrence: None)
  Receive Date: 20111130
  Receipt Date: 20111116
  Transmission Date: 20120403
  Serious: Yes (Hospitalization)
  Sender: FDA-Public Use
  Company Number: US-BAYER-2011-049718

PATIENT
  Age: 27 Year
  Sex: Female
  Weight: 68 kg

DRUGS (5)
  1. SKELAXIN [Concomitant]
     Dosage: 800 MG, UNK
     Dates: start: 20081128
  2. ACETAMINOPHEN AND HYDROCODONE BITARTRATE [Concomitant]
     Dosage: UNK
     Dates: start: 20090130
  3. YAZ [Suspect]
     Dosage: UNK
     Route: 048
  4. YASMIN [Suspect]
     Dosage: UNK
     Route: 048
  5. IBUPROFEN [Concomitant]
     Dosage: 800 MG, UNK
     Dates: start: 20081128

REACTIONS (4)
  - INJURY [None]
  - GALLBLADDER DISORDER [None]
  - CHOLECYSTITIS CHRONIC [None]
  - PAIN [None]
